FAERS Safety Report 4896637-6 (Version None)
Quarter: 2006Q1

REPORT INFORMATION
  Report Type: 
  Country: None (occurrence: None)
  Receive Date: 20060131
  Receipt Date: 20051017
  Transmission Date: 20060701
  Serious: Yes (Other)
  Sender: FDA-Public Use
  Company Number: US-ROCHE-421669

PATIENT
  Age: 56 Year
  Sex: Female

DRUGS (2)
  1. PEGASYS [Suspect]
     Indication: HEPATITIS C
     Dosage: 180 MCG WEEKLY.
     Route: 058
     Dates: start: 20050311
  2. COPEGUS [Suspect]
     Indication: HEPATITIS C
     Route: 048
     Dates: start: 20050311

REACTIONS (8)
  - CONSTIPATION [None]
  - DRY SKIN [None]
  - JOINT SWELLING [None]
  - LYMPHADENOPATHY [None]
  - PRURITUS [None]
  - RETINAL DETACHMENT [None]
  - TINNITUS [None]
  - WHITE BLOOD CELL COUNT DECREASED [None]
